FAERS Safety Report 10764448 (Version 1)
Quarter: 2015Q1

REPORT INFORMATION
  Report Type: Spontaneous
  Country: US (occurrence: US)
  Receive Date: 20150205
  Receipt Date: 20150205
  Transmission Date: 20150721
  Serious: Yes (Other)
  Sender: FDA-Public Use
  Company Number: US-AMGEN-USASP2015009733

PATIENT
  Age: 67 Year
  Sex: Female

DRUGS (2)
  1. METHOTREXATE [Concomitant]
     Active Substance: METHOTREXATE
     Dosage: UNK
  2. ENBREL [Suspect]
     Active Substance: ETANERCEPT
     Indication: RHEUMATOID ARTHRITIS
     Dosage: 50 MG, QWK
     Route: 065
     Dates: start: 20110505, end: 201412

REACTIONS (8)
  - Fall [Recovered/Resolved]
  - Bronchitis [Recovered/Resolved]
  - Gastroenteritis viral [Recovered/Resolved]
  - Rhinorrhoea [Recovered/Resolved]
  - Peripheral swelling [Recovered/Resolved]
  - Dyspepsia [Recovered/Resolved]
  - Infected bites [Not Recovered/Not Resolved]
  - Animal bite [Not Recovered/Not Resolved]

NARRATIVE: CASE EVENT DATE: 2014
